FAERS Safety Report 14759904 (Version 1)
Quarter: 2018Q2

REPORT INFORMATION
  Report Type: Spontaneous
  Country: US (occurrence: US)
  Receive Date: 20180409
  Receipt Date: 20180409
  Transmission Date: 20180711
  Serious: No
  Sender: FDA-Public Use
  Company Number: None

PATIENT
  Age: 73 Year
  Sex: Female
  Weight: 58.5 kg

DRUGS (7)
  1. CA SUPPLEMENT [Concomitant]
  2. OCCUVITE [Concomitant]
  3. PROTONIX [Concomitant]
     Active Substance: PANTOPRAZOLE SODIUM
  4. BIOTIN [Concomitant]
     Active Substance: BIOTIN
  5. PICATO [Suspect]
     Active Substance: INGENOL MEBUTATE
     Indication: HYPERKERATOSIS
     Dosage: ?          QUANTITY:1 APPLICATION;?
     Route: 061
  6. MG [Concomitant]
     Active Substance: MAGNESIUM
  7. VITAMIN D [Concomitant]
     Active Substance: CHOLECALCIFEROL

REACTIONS (5)
  - Chills [None]
  - Dyspnoea [None]
  - Influenza like illness [None]
  - Nasal congestion [None]
  - Sinus congestion [None]

NARRATIVE: CASE EVENT DATE: 20180225
